FAERS Safety Report 19906115 (Version 1)
Quarter: 2021Q3

REPORT INFORMATION
  Report Type: Spontaneous
  Country: CN (occurrence: CN)
  Receive Date: 20210930
  Receipt Date: 20210930
  Transmission Date: 20211014
  Serious: Yes (Other)
  Sender: FDA-Public Use
  Company Number: CN-ABBVIE-21K-035-4100220-00

PATIENT
  Age: 71 Year
  Sex: Female
  Weight: 65 kg

DRUGS (4)
  1. DEPAKINE CHRONO [Suspect]
     Active Substance: VALPROATE SODIUM
     Indication: SCHIZOPHRENIA
     Dosage: 0.5 GM
     Route: 048
     Dates: start: 20180722, end: 2018
  2. DEPAKINE CHRONO [Suspect]
     Active Substance: VALPROATE SODIUM
     Dosage: 0.5G?0?0.25G
     Route: 048
     Dates: start: 20180803, end: 201808
  3. DEPAKINE CHRONO [Suspect]
     Active Substance: VALPROATE SODIUM
     Dosage: 0.5
     Route: 048
     Dates: start: 20180806
  4. DEPAKINE CHRONO [Suspect]
     Active Substance: VALPROATE SODIUM
     Dosage: 0.5 G
     Route: 048
     Dates: start: 20180806

REACTIONS (2)
  - Platelet count decreased [Recovered/Resolved]
  - Petechiae [Recovered/Resolved]
